FAERS Safety Report 4895851-3 (Version None)
Quarter: 2006Q1

REPORT INFORMATION
  Report Type: 
  Country: None (occurrence: None)
  Receive Date: 20060125
  Receipt Date: 20060110
  Transmission Date: 20060701
  Serious: Yes (Life-Threatening, Other)
  Sender: FDA-Public Use
  Company Number: 2006-00050

PATIENT
  Age: 75 Year
  Sex: Female

DRUGS (1)
  1. VELCADE [Suspect]

REACTIONS (5)
  - DIARRHOEA [None]
  - HAEMOPTYSIS [None]
  - HYPOTHERMIA [None]
  - RECTAL HAEMORRHAGE [None]
  - SEPSIS [None]
